FAERS Safety Report 19167677 (Version 1)
Quarter: 2021Q2

REPORT INFORMATION
  Report Type: Spontaneous
  Country: US (occurrence: US)
  Receive Date: 20210422
  Receipt Date: 20210422
  Transmission Date: 20210717
  Serious: Yes (Other)
  Sender: FDA-Public Use
  Company Number: NVSC2020US349378

PATIENT
  Age: 3 Year
  Sex: Female

DRUGS (6)
  1. BEVACIZUMAB. [Concomitant]
     Active Substance: BEVACIZUMAB
     Indication: NEUROFIBROMA
     Dosage: UNK
     Route: 065
  2. CARBOPLATIN. [Suspect]
     Active Substance: CARBOPLATIN
     Indication: NEUROFIBROMA
     Dosage: UNK
     Route: 065
  3. VINCRISTINE [Concomitant]
     Active Substance: VINCRISTINE
     Indication: NEUROFIBROMA
     Dosage: UNK
     Route: 065
  4. BEVACIZUMAB. [Concomitant]
     Active Substance: BEVACIZUMAB
     Indication: OPTIC GLIOMA
  5. CARBOPLATIN. [Suspect]
     Active Substance: CARBOPLATIN
     Indication: OPTIC GLIOMA
  6. VINCRISTINE [Concomitant]
     Active Substance: VINCRISTINE
     Indication: OPTIC GLIOMA

REACTIONS (4)
  - Deafness [Unknown]
  - Neurofibroma [Unknown]
  - Optic glioma [Unknown]
  - Malignant neoplasm progression [Unknown]
